FAERS Safety Report 6641015-2 (Version None)
Quarter: 2010Q1

REPORT INFORMATION
  Report Type: 
  Country: None (occurrence: None)
  Receive Date: 20100318
  Receipt Date: 20100315
  Transmission Date: 20100710
  Serious: Yes (Hospitalization)
  Sender: FDA-Public Use
  Company Number: B0639875A

PATIENT
  Age: 78 Year
  Sex: Female

DRUGS (1)
  1. AUGMENTIN [Suspect]
     Dosage: 1G THREE TIMES PER DAY
     Route: 048
     Dates: start: 20091223, end: 20091224

REACTIONS (3)
  - CONTRAINDICATION TO MEDICAL TREATMENT [None]
  - DERMATITIS EXFOLIATIVE [None]
  - PRURITUS [None]
